FAERS Safety Report 7917220-1 (Version None)
Quarter: 2011Q4

REPORT INFORMATION
  Report Type: 
  Country: None (occurrence: None)
  Receive Date: 20111116
  Receipt Date: 20111101
  Transmission Date: 20120403
  Serious: Yes (Hospitalization)
  Sender: FDA-Public Use
  Company Number: PHEH2011US08320

PATIENT
  Sex: Female

DRUGS (4)
  1. AFINITOR [Suspect]
     Dosage: 10 MG, QD
  2. DIOVAN HCT [Concomitant]
  3. SANDOSTATIN [Concomitant]
  4. PRILOSEC [Concomitant]

REACTIONS (7)
  - MUSCULOSKELETAL STIFFNESS [None]
  - DYSGEUSIA [None]
  - OEDEMA PERIPHERAL [None]
  - FEELING ABNORMAL [None]
  - ULCER [None]
  - APHAGIA [None]
  - ARTHRALGIA [None]
